FAERS Safety Report 7627136-6 (Version None)
Quarter: 2011Q3

REPORT INFORMATION
  Report Type: 
  Country: None (occurrence: None)
  Receive Date: 20110701
  Receipt Date: 20110208
  Transmission Date: 20111222
  Serious: Yes (Other)
  Sender: FDA-Public Use
  Company Number: 7041470

PATIENT
  Age: 36 Year
  Sex: Female

DRUGS (9)
  1. SOMA [Concomitant]
  2. REBIF [Suspect]
     Indication: MULTIPLE SCLEROSIS
     Dosage: 44 MCG, 3 IN 1 WK, SUBCUTANEOUS
     Route: 058
     Dates: start: 20080917
  3. CLONAZEPAM [Concomitant]
  4. PROMETHAZINE [Concomitant]
  5. VITAMIN D [Concomitant]
  6. TRAZODONE HCL [Concomitant]
  7. PRILOSEC [Concomitant]
  8. NORCO [Concomitant]
  9. DIPHENHYDRAMINE HCL [Concomitant]

REACTIONS (5)
  - MEMORY IMPAIRMENT [None]
  - ANXIETY [None]
  - INFLUENZA LIKE ILLNESS [None]
  - CONVERSION DISORDER [None]
  - CONVULSION [None]
